FAERS Safety Report 14117923 (Version 3)
Quarter: 2018Q1

REPORT INFORMATION
  Report Type: Report from Study
  Country: None (occurrence: US)
  Receive Date: 20171024
  Receipt Date: 20180331
  Transmission Date: 20180508
  Serious: Yes (Hospitalization, Other)
  Sender: FDA-Public Use
  Company Number: US-ABBVIE-17K-163-2041322-00

PATIENT
  Age: 46 Year
  Sex: Female

DRUGS (5)
  1. HUMIRA [Suspect]
     Active Substance: ADALIMUMAB
     Route: 058
     Dates: start: 20170703, end: 20170731
  2. HUMIRA [Suspect]
     Active Substance: ADALIMUMAB
     Dosage: DAY 1
     Route: 058
     Dates: start: 20170605, end: 20170605
  3. HUMIRA [Suspect]
     Active Substance: ADALIMUMAB
     Dosage: DAY 15
     Route: 058
     Dates: start: 20170620, end: 20170620
  4. HUMIRA [Suspect]
     Active Substance: ADALIMUMAB
     Indication: CROHN^S DISEASE
     Route: 058
  5. HUMIRA [Suspect]
     Active Substance: ADALIMUMAB
     Route: 058
     Dates: start: 20171002, end: 201712

REACTIONS (24)
  - Abdominal pain [Not Recovered/Not Resolved]
  - Tooth abscess [Unknown]
  - Decreased appetite [Unknown]
  - Diarrhoea [Not Recovered/Not Resolved]
  - Diarrhoea haemorrhagic [Not Recovered/Not Resolved]
  - Gastric bypass [Unknown]
  - Stomatitis [Unknown]
  - Intracranial mass [Unknown]
  - Device related infection [Unknown]
  - Frequent bowel movements [Unknown]
  - Night sweats [Unknown]
  - CSF test abnormal [Unknown]
  - Intracranial pressure increased [Unknown]
  - Chills [Unknown]
  - Impaired quality of life [Unknown]
  - Depressed mood [Unknown]
  - Headache [Unknown]
  - Lumboperitoneal shunt [Unknown]
  - Malaise [Unknown]
  - Abnormal faeces [Unknown]
  - Visual field defect [Unknown]
  - Insomnia [Unknown]
  - Nausea [Not Recovered/Not Resolved]
  - Rectal haemorrhage [Not Recovered/Not Resolved]

NARRATIVE: CASE EVENT DATE: 2013
